FAERS Safety Report 8455545-4 (Version None)
Quarter: 2012Q2

REPORT INFORMATION
  Report Type: 
  Country: None (occurrence: None)
  Receive Date: 20120621
  Receipt Date: 20120612
  Transmission Date: 20120825
  Serious: Yes (Hospitalization)
  Sender: FDA-Public Use
  Company Number: JP-ASTRAZENECA-2012SE40918

PATIENT
  Age: 29 Year
  Sex: Female
  Weight: 57 kg

DRUGS (7)
  1. PREDNISOLONE [Suspect]
     Route: 048
  2. HYDRALAZINE HYDROCHLORIDE [Suspect]
  3. CANDESARTAN CILEXETIL [Suspect]
     Indication: HYPERTENSION
     Route: 048
  4. TENORMIN [Suspect]
     Indication: HYPERTENSION
     Route: 048
  5. NIFEDIPINE [Suspect]
  6. HYDRALAZINE HYDROCHLORIDE [Suspect]
  7. AMLODIPINE [Suspect]

REACTIONS (6)
  - DYSPNOEA [None]
  - PLEURAL EFFUSION [None]
  - ASCITES [None]
  - CAESAREAN SECTION [None]
  - MATERNAL EXPOSURE DURING PREGNANCY [None]
  - PRODUCTIVE COUGH [None]
